FAERS Safety Report 8697436 (Version 2)
Quarter: 2012Q4

REPORT INFORMATION
  Report Type: Report from Study
  Country: DE (occurrence: DE)
  Receive Date: 20120801
  Receipt Date: 20121102
  Transmission Date: 20130627
  Serious: Yes (Other)
  Sender: FDA-Public Use
  Company Number: DE-ABBOTT-12P-062-0961584-00

PATIENT
  Age: 47 Year
  Sex: Male
  Weight: 113 kg

DRUGS (2)
  1. ZEMPLAR INJECTION [Suspect]
     Indication: HYPERPARATHYROIDISM SECONDARY
     Dosage: 10 mcg per week
     Route: 042
     Dates: start: 20110225
  2. DEKRISTOL [Concomitant]
     Indication: PRODUCT USED FOR UNKNOWN INDICATION
     Dosage: 20000 IU every four weeks
     Dates: start: 20110916

REACTIONS (4)
  - Central nervous system lesion [Unknown]
  - Toxicity to various agents [Unknown]
  - Restless legs syndrome [Unknown]
  - Cerebellar syndrome [Unknown]
